FAERS Safety Report 9213747 (Version 1)
Quarter: 2013Q2

REPORT INFORMATION
  Report Type: Spontaneous
  Country: GB (occurrence: GB)
  Receive Date: 20130405
  Receipt Date: 20130405
  Transmission Date: 20140414
  Serious: Yes (Other)
  Sender: FDA-Public Use
  Company Number: GB-JNJCH-2007313843

PATIENT
  Age: 80 Year
  Sex: Female

DRUGS (4)
  1. IBUPROFEN [Suspect]
     Dosage: 400 MG THREE TIMES DAILY
     Route: 048
  2. LEVOBUNOLOL [Concomitant]
     Indication: GLAUCOMA
     Dosage: UNKNOWN, ONCE DAILY
     Route: 065
  3. DORZOLAMIDE [Concomitant]
     Indication: GLAUCOMA
     Dosage: UNKNOWN, ONCE DAILY
     Route: 065
     Dates: start: 1999
  4. LATANOPROST [Concomitant]
     Indication: GLAUCOMA
     Dosage: UNKNOWN, ONCE DAILY
     Route: 065
     Dates: start: 1999

REACTIONS (1)
  - Acute generalised exanthematous pustulosis [Recovered/Resolved]
